FAERS Safety Report 9500790 (Version 1)
Quarter: 2013Q1

REPORT INFORMATION
  Report Type: Spontaneous
  Country: US (occurrence: None)
  Receive Date: 20130107
  Receipt Date: 20130107
  Transmission Date: 20140127
  Serious: No
  Sender: FDA-Public Use
  Company Number: PHHY2012US102393

PATIENT
  Age: 58 Year
  Sex: Female

DRUGS (7)
  1. GILENYA [Suspect]
     Indication: MULTIPLE SCLEROSIS
     Route: 048
     Dates: start: 20111025
  2. SUMATRIPTAN SUCCINATE (SUMATRIPTAN SUCCINATE) [Concomitant]
  3. XANAX (ALPRAZOLAM) [Concomitant]
  4. PROSOM (ESTAZOLAM) [Concomitant]
  5. VALTREX (VALACICLOVIR HYDROCHLORIDE) [Concomitant]
  6. MILNACIPRAN (MILNACIPRAN) (MILNACIPRAN) [Concomitant]
  7. COPAXONE (GLATIRAMER ACETATE) [Concomitant]

REACTIONS (5)
  - Photosensitivity reaction [None]
  - Anxiety [None]
  - Nausea [None]
  - Musculoskeletal pain [None]
  - Hypertension [None]
